FAERS Safety Report 15745124 (Version 1)
Quarter: 2018Q4

REPORT INFORMATION
  Report Type: Spontaneous
  Country: CA (occurrence: CA)
  Receive Date: 20181220
  Receipt Date: 20181220
  Transmission Date: 20190205
  Serious: Yes (Disabling)
  Sender: FDA-Public Use
  Company Number: CA-BAYER-2018-236819

PATIENT
  Sex: Female

DRUGS (1)
  1. CIPRO [Suspect]
     Active Substance: CIPROFLOXACIN HYDROCHLORIDE
     Indication: URINARY TRACT INFECTION
     Dosage: UNK UNK, QD
     Route: 048

REACTIONS (3)
  - Sjogren^s syndrome [Recovered/Resolved]
  - Neuropathy peripheral [Recovered/Resolved]
  - Antinuclear antibody positive [Recovered/Resolved]
